FAERS Safety Report 4821143-4 (Version None)
Quarter: 2005Q4

REPORT INFORMATION
  Report Type: 
  Country: None (occurrence: None)
  Receive Date: 20051103
  Receipt Date: 20051025
  Transmission Date: 20060501
  Serious: Yes (Other)
  Sender: FDA-Public Use
  Company Number: 2005147212

PATIENT
  Age: 71 Year
  Sex: Female
  Weight: 73.4827 kg

DRUGS (4)
  1. NORVASC [Suspect]
     Indication: HYPERTENSION
     Dosage: 5 MG (5 MG , 1 IN 1 D)
     Dates: start: 20050101
  2. COUMADIN [Concomitant]
  3. LEVOTHYROXINE SODIUM [Concomitant]
  4. NEXIUM [Concomitant]

REACTIONS (1)
  - OSTEOPOROSIS [None]
